FAERS Safety Report 10409757 (Version 1)
Quarter: 2014Q2

REPORT INFORMATION
  Report Type: Spontaneous
  Country: US (occurrence: None)
  Receive Date: 20140604
  Receipt Date: 20140604
  Transmission Date: 20141212
  Serious: No
  Sender: FDA-Public Use
  Company Number: 163-POMAL-14045849

PATIENT
  Age: 59 Year
  Sex: Male

DRUGS (5)
  1. POMALYST (POMALIDOMIDE) (2 MILLIGRAM, CAPSULES) [Suspect]
     Indication: PLASMA CELL MYELOMA
     Route: 048
     Dates: start: 20140128
  2. ASPIRIN (ACETYLSALICYLIC ACID) [Concomitant]
  3. COD LIVER (COD-LIVER OIL) [Concomitant]
  4. ADVIL (IBUPROFEN) [Concomitant]
  5. DEXAMETHASONE [Concomitant]

REACTIONS (3)
  - Oral pain [None]
  - Fatigue [None]
  - Dyspnoea [None]
